FAERS Safety Report 21918229 (Version 3)
Quarter: 2023Q1

REPORT INFORMATION
  Report Type: Spontaneous
  Country: IN (occurrence: IN)
  Receive Date: 20230127
  Receipt Date: 20230224
  Transmission Date: 20230418
  Serious: Yes (Other)
  Sender: FDA-Public Use
  Company Number: IN-CIPLA LTD.-2023IN00300

PATIENT

DRUGS (5)
  1. PACLITAXEL [Suspect]
     Active Substance: PACLITAXEL
     Indication: Squamous cell carcinoma of the oral cavity
     Dosage: UNK, 5 CYCLES
     Route: 042
     Dates: start: 2018, end: 2018
  2. PACLITAXEL [Suspect]
     Active Substance: PACLITAXEL
     Dosage: UNK (THREE CYCLES)
     Route: 042
     Dates: start: 201802, end: 2018
  3. CARBOPLATIN [Suspect]
     Active Substance: CARBOPLATIN
     Indication: Squamous cell carcinoma of the oral cavity
     Dosage: UNK (THREE CYCLES)
     Route: 065
     Dates: start: 201802, end: 2018
  4. CISPLATIN [Suspect]
     Active Substance: CISPLATIN
     Indication: Squamous cell carcinoma of the oral cavity
     Dosage: UNK,  5 CYCLES
     Route: 042
     Dates: start: 2018, end: 2018
  5. FLUOROURACIL [Suspect]
     Active Substance: FLUOROURACIL
     Indication: Squamous cell carcinoma of the oral cavity
     Dosage: UNK, 5 CYCLES
     Route: 042
     Dates: start: 2018, end: 2018

REACTIONS (4)
  - Toxicity to various agents [Unknown]
  - Drug ineffective [Unknown]
  - Stomatitis [Recovering/Resolving]
  - Dysphagia [Recovering/Resolving]

NARRATIVE: CASE EVENT DATE: 20180101
